FAERS Safety Report 16927868 (Version 2)
Quarter: 2020Q1

REPORT INFORMATION
  Report Type: Spontaneous
  Country: GB (occurrence: GB)
  Receive Date: 20191017
  Receipt Date: 20200116
  Transmission Date: 20200409
  Serious: Yes (Other)
  Sender: FDA-Public Use
  Company Number: GB-DRREDDYS-GER/UKI/19/0115121

PATIENT
  Age: 35 Year
  Sex: Female
  Weight: 106.13 kg

DRUGS (2)
  1. FEXOFENADINE [Concomitant]
     Active Substance: FEXOFENADINE HYDROCHLORIDE
     Indication: PRODUCT USED FOR UNKNOWN INDICATION
     Route: 065
  2. MONTELUKAST [Suspect]
     Active Substance: MONTELUKAST SODIUM
     Indication: PRODUCT USED FOR UNKNOWN INDICATION
     Route: 048
     Dates: start: 20190110, end: 20190923

REACTIONS (2)
  - Suicidal ideation [Recovering/Resolving]
  - Obsessive thoughts [Recovering/Resolving]

NARRATIVE: CASE EVENT DATE: 20190501
